FAERS Safety Report 6736221-2 (Version None)
Quarter: 2010Q2

REPORT INFORMATION
  Report Type: 
  Country: None (occurrence: None)
  Receive Date: 20100521
  Receipt Date: 20100430
  Transmission Date: 20101027
  Serious: Yes (Other)
  Sender: FDA-Public Use
  Company Number: US-SANOFI-AVENTIS-2010SA020949

PATIENT
  Age: 76 Year
  Sex: Female
  Weight: 52 kg

DRUGS (8)
  1. PLAVIX [Suspect]
     Route: 048
     Dates: start: 20100224
  2. PLAVIX [Suspect]
     Route: 048
     Dates: start: 20100224
  3. PLAVIX [Suspect]
     Route: 048
     Dates: start: 20030127, end: 20100218
  4. PLAVIX [Suspect]
     Route: 048
     Dates: start: 20030127, end: 20100218
  5. ASPIRIN [Suspect]
     Route: 048
     Dates: start: 20030101
  6. OSCAL [Concomitant]
     Indication: BONE DISORDER
     Route: 065
  7. LIPITOR [Concomitant]
     Route: 048
  8. LIPITOR [Concomitant]
     Route: 048

REACTIONS (5)
  - CONTUSION [None]
  - FAECES DISCOLOURED [None]
  - GASTRIC DISORDER [None]
  - GASTRITIS [None]
  - URINARY TRACT DISORDER [None]
